FAERS Safety Report 4995365-6 (Version None)
Quarter: 2006Q2

REPORT INFORMATION
  Report Type: 
  Country: None (occurrence: None)
  Receive Date: 20060508
  Receipt Date: 20060424
  Transmission Date: 20061013
  Serious: Yes (Hospitalization)
  Sender: FDA-Public Use
  Company Number: FR-BRISTOL-MYERS SQUIBB COMPANY-13359369

PATIENT
  Age: 63 Year
  Sex: Male

DRUGS (7)
  1. HOLOXAN [Suspect]
     Indication: BRONCHIAL CARCINOMA
     Route: 042
     Dates: start: 20050713, end: 20050714
  2. CARBOPLATIN [Suspect]
     Indication: BRONCHIAL CARCINOMA
     Dates: start: 20050620, end: 20050620
  3. ADRIBLASTINE [Suspect]
     Indication: BRONCHIAL CARCINOMA
     Route: 042
     Dates: start: 20050714, end: 20050714
  4. VEPESIDE-SANDOZ [Interacting]
     Indication: BRONCHIAL CARCINOMA
     Route: 042
     Dates: start: 20050713, end: 20050715
  5. ISOPTIN [Interacting]
     Dates: start: 20050524
  6. PANCREON [Concomitant]
     Indication: PANCREATIC INSUFFICIENCY
  7. NEXIUM [Concomitant]
     Indication: ULCER

REACTIONS (3)
  - BONE MARROW FAILURE [None]
  - CARDIAC FLUTTER [None]
  - HYPERTHERMIA [None]
